FAERS Safety Report 21041618 (Version 7)
Quarter: 2023Q1

REPORT INFORMATION
  Report Type: Spontaneous
  Country: CA (occurrence: CA)
  Receive Date: 20220705
  Receipt Date: 20230128
  Transmission Date: 20230417
  Serious: Yes (Hospitalization, Other)
  Sender: FDA-Public Use
  Company Number: CA-CELLTRION INC.-2020CA032285

PATIENT

DRUGS (22)
  1. INFLECTRA [Suspect]
     Active Substance: INFLIXIMAB-DYYB
     Indication: Crohn^s disease
     Dosage: 400 MG (WEEKS 0, 2, 6, THEN EVERY 8 WEEKS)
     Route: 042
     Dates: start: 20201130, end: 20201130
  2. INFLECTRA [Suspect]
     Active Substance: INFLIXIMAB-DYYB
     Dosage: 400 MG, Q 0, 2, 6 WEEKS, THEN EVERY 8 WEEKS
     Route: 042
     Dates: start: 20201130, end: 20220622
  3. INFLECTRA [Suspect]
     Active Substance: INFLIXIMAB-DYYB
     Dosage: 400 MG (WEEKS 0, 2, 6, THEN EVERY 8 WEEKS)
     Route: 042
     Dates: start: 20201214, end: 20201214
  4. INFLECTRA [Suspect]
     Active Substance: INFLIXIMAB-DYYB
     Dosage: 400 MG (WEEKS 0, 2, 6, THEN EVERY 8 WEEKS)
     Route: 042
     Dates: start: 20210111
  5. INFLECTRA [Suspect]
     Active Substance: INFLIXIMAB-DYYB
     Dosage: 400 MG (WEEKS 0, 2, 6, THEN EVERY 8 WEEKS)
     Route: 042
     Dates: start: 20210506, end: 20210506
  6. INFLECTRA [Suspect]
     Active Substance: INFLIXIMAB-DYYB
     Dosage: 400 MG (WEEKS 0, 2, 6, THEN EVERY 8 WEEKS)
     Route: 042
     Dates: start: 20210630
  7. INFLECTRA [Suspect]
     Active Substance: INFLIXIMAB-DYYB
     Dosage: 400 MG (WEEKS 0, 2, 6, THEN EVERY 8 WEEKS)
     Route: 042
     Dates: start: 20211020
  8. INFLECTRA [Suspect]
     Active Substance: INFLIXIMAB-DYYB
     Dosage: 400 MG (WEEKS 0, 2, 6, THEN EVERY 8 WEEKS)
     Route: 042
     Dates: start: 20211022
  9. INFLECTRA [Suspect]
     Active Substance: INFLIXIMAB-DYYB
     Dosage: 400 MG  (WEEKS 0, 2, 6, THEN EVERY 8 WEEKS)
     Route: 042
     Dates: start: 20211215
  10. INFLECTRA [Suspect]
     Active Substance: INFLIXIMAB-DYYB
     Dosage: 400 MG  (WEEKS 0, 2, 6, THEN EVERY 8 WEEKS)
     Route: 042
     Dates: start: 20220209
  11. INFLECTRA [Suspect]
     Active Substance: INFLIXIMAB-DYYB
     Dosage: 400 MG  (WEEKS 0, 2, 6, THEN EVERY 8 WEEKS)
     Route: 042
     Dates: start: 20220420
  12. INFLECTRA [Suspect]
     Active Substance: INFLIXIMAB-DYYB
     Dosage: 400 MG  (WEEKS 0, 2, 6, THEN EVERY 8 WEEKS)
     Route: 042
     Dates: start: 20220422
  13. INFLECTRA [Suspect]
     Active Substance: INFLIXIMAB-DYYB
     Dosage: 400 MG  (WEEKS 0, 2, 6, THEN EVERY 8 WEEKS)
     Route: 042
     Dates: start: 20220622
  14. INFLECTRA [Suspect]
     Active Substance: INFLIXIMAB-DYYB
     Dosage: 7.5 MG/KG, EVERY 6 WEEKS
     Route: 042
     Dates: start: 20220803
  15. INFLECTRA [Suspect]
     Active Substance: INFLIXIMAB-DYYB
     Dosage: 7.5 MG/KG, EVERY 6 WEEKS
     Route: 042
     Dates: start: 20221026
  16. INFLECTRA [Suspect]
     Active Substance: INFLIXIMAB-DYYB
     Dosage: 7.5 MG/KG, EVERY 6 WEEKS
     Route: 042
     Dates: start: 20221026
  17. INFLECTRA [Suspect]
     Active Substance: INFLIXIMAB-DYYB
     Dosage: 7.5 MG/KG, EVERY 6 WEEKS
     Route: 042
     Dates: start: 20230118
  18. FOLIC ACID [Concomitant]
     Active Substance: FOLIC ACID
     Dosage: UNK
  19. FOLIC ACID [Concomitant]
     Active Substance: FOLIC ACID
     Dosage: 1 DF DOSAGE INFORMATION NOT AVAILABLE
     Route: 065
  20. IRON [Concomitant]
     Active Substance: IRON
     Dosage: UNK
  21. IRON [Concomitant]
     Active Substance: IRON
     Dosage: 1 DF DOSAGE INFORMATION NOT AVAILABLE
     Route: 065
  22. METHOTREXATE [Concomitant]
     Active Substance: METHOTREXATE
     Dosage: 1 DF DOSAGE INFORMATION NOT AVAILABLE
     Route: 065
     Dates: start: 20201112

REACTIONS (17)
  - Hepatic infection [Recovered/Resolved]
  - Off label use [Unknown]
  - Off label use [Unknown]
  - Intentional product use issue [Unknown]
  - Inappropriate schedule of product administration [Unknown]
  - Blood pressure fluctuation [Unknown]
  - Heart rate decreased [Unknown]
  - Heart rate irregular [Not Recovered/Not Resolved]
  - Diarrhoea [Not Recovered/Not Resolved]
  - Pus in stool [Not Recovered/Not Resolved]
  - Mucous stools [Not Recovered/Not Resolved]
  - Abdominal pain [Not Recovered/Not Resolved]
  - Frequent bowel movements [Not Recovered/Not Resolved]
  - Abnormal faeces [Unknown]
  - COVID-19 [Not Recovered/Not Resolved]
  - Gout [Unknown]
  - Body temperature fluctuation [Not Recovered/Not Resolved]

NARRATIVE: CASE EVENT DATE: 20210111
